FAERS Safety Report 10593664 (Version 3)
Quarter: 2014Q4

REPORT INFORMATION
  Report Type: Spontaneous
  Country: US (occurrence: US)
  Receive Date: 20141119
  Receipt Date: 20141208
  Transmission Date: 20150529
  Serious: Yes (Hospitalization, Other)
  Sender: FDA-Public Use
  Company Number: US-GILEAD-2014-0123303

PATIENT
  Age: 82 Year
  Sex: Male

DRUGS (2)
  1. WARFARIN [Concomitant]
     Active Substance: WARFARIN
  2. LETAIRIS [Suspect]
     Active Substance: AMBRISENTAN
     Indication: PRODUCT USED FOR UNKNOWN INDICATION
     Dosage: 10 MG, QD
     Route: 065
     Dates: start: 20110614

REACTIONS (10)
  - Unevaluable event [Unknown]
  - Viral infection [Unknown]
  - Asthenia [Not Recovered/Not Resolved]
  - Cardiac failure congestive [Unknown]
  - Dysstasia [Unknown]
  - Respiratory tract infection viral [Unknown]
  - Cough [Recovering/Resolving]
  - Presyncope [Unknown]
  - Dyspnoea [Unknown]
  - Fluid retention [Unknown]
